FAERS Safety Report 16804423 (Version 2)
Quarter: 2019Q3

REPORT INFORMATION
  Report Type: Spontaneous
  Country: US (occurrence: US)
  Receive Date: 20190913
  Receipt Date: 20190924
  Transmission Date: 20191005
  Serious: No
  Sender: FDA-Public Use
  Company Number: US-PFIZER INC-2019394975

PATIENT
  Age: 71 Year
  Sex: Female
  Weight: 55.34 kg

DRUGS (2)
  1. LYRICA [Suspect]
     Active Substance: PREGABALIN
     Indication: GLYCOGEN STORAGE DISEASE TYPE V
     Dosage: 600 MG, DAILY (ONE CAPSULE BY MOUTH TWICE A DAY AND TWO CAPSULES BY MOUTH EVERY NIGHT)
     Route: 048
  2. LYRICA [Suspect]
     Active Substance: PREGABALIN
     Indication: ARTHRITIS

REACTIONS (5)
  - Off label use [Unknown]
  - Product use in unapproved indication [Unknown]
  - Hypertension [Unknown]
  - Fall [Unknown]
  - Visual impairment [Unknown]
